FAERS Safety Report 8852875 (Version 2)
Quarter: 2012Q4

REPORT INFORMATION
  Report Type: 
  Country: JP (occurrence: JP)
  Receive Date: 20121022
  Receipt Date: 20121227
  Transmission Date: 20130627
  Serious: Yes (Hospitalization)
  Sender: FDA-Public Use
  Company Number: JP-OTSUKA-JP-2012-16038

PATIENT
  Age: 83 Year
  Sex: Male
  Weight: 49 kg

DRUGS (16)
  1. PLETAAL [Suspect]
     Indication: PERIPHERAL ARTERIAL OCCLUSIVE DISEASE
     Dosage: 200 Mg milligram(s), bid
     Route: 048
     Dates: start: 20120705, end: 20120713
  2. PLETAAL [Suspect]
     Indication: MYOCARDIAL ISCHAEMIA
  3. BAYASPIRIN [Suspect]
     Indication: THROMBOSIS PROPHYLAXIS
     Dosage: 100 Mg milligram(s), qd
     Route: 048
     Dates: start: 20120705, end: 20120717
  4. SEVOFLURANE [Concomitant]
     Indication: GENERAL ANAESTHESIA
     Dosage: UNK
     Route: 055
     Dates: start: 20120704, end: 20120704
  5. FENTANEST [Concomitant]
     Indication: GENERAL ANAESTHESIA
     Dosage: UNK
     Route: 065
     Dates: start: 20120704, end: 20120704
  6. UNASYN [Concomitant]
     Indication: INFECTION PROPHYLAXIS
     Dosage: 3.0 G gram(s), bid
     Route: 041
     Dates: start: 20120704, end: 20120709
  7. PARIET [Concomitant]
     Indication: PROPHYLAXIS AGAINST GASTROINTESTINAL ULCER
     Dosage: 20 Mg milligram(s), qd
     Route: 048
     Dates: start: 20120705, end: 20120713
  8. PARIET [Concomitant]
     Indication: PROPHYLAXIS
  9. LUPRAC [Concomitant]
     Indication: OEDEMA PERIPHERAL
     Dosage: 8 Mg milligram(s), qd
     Route: 048
     Dates: start: 20120705, end: 20120713
  10. CEFAMEZIN ALPHA [Concomitant]
     Indication: INFECTION PROPHYLAXIS
     Dosage: 1 G gram(s), bid
     Route: 041
     Dates: start: 20120710, end: 20120713
  11. LIVALO [Concomitant]
     Dosage: 2 G gram(s), bid
     Route: 048
  12. FLIVAS [Concomitant]
     Dosage: 75 Mg milligram(s), tid
     Route: 048
  13. TALION [Concomitant]
     Dosage: 20 Mg milligram(s), bid
     Route: 048
  14. CINAL [Concomitant]
     Dosage: 2 G gram(s), tid
     Route: 048
  15. MAGMITT [Concomitant]
     Dosage: 750 Mg milligram(s), tid
     Route: 048
  16. WARFARIN [Concomitant]
     Dosage: 2.5 Mg milligram(s), qd
     Route: 048

REACTIONS (3)
  - Eosinophil count increased [Recovering/Resolving]
  - Pyrexia [Recovered/Resolved]
  - Palpitations [Unknown]
